FAERS Safety Report 5447775-0 (Version None)
Quarter: 2007Q3

REPORT INFORMATION
  Report Type: 
  Country: None (occurrence: None)
  Receive Date: 20070910
  Receipt Date: 20070905
  Transmission Date: 20080115
  Serious: Yes (Life-Threatening)
  Sender: FDA-Public Use
  Company Number: JP-ASTRAZENECA-2007AP05376

PATIENT
  Age: 940 Month
  Sex: Male
  Weight: 57.6 kg

DRUGS (11)
  1. IRESSA [Suspect]
     Indication: LUNG ADENOCARCINOMA
     Route: 048
     Dates: start: 20070228, end: 20070807
  2. DEPAS [Concomitant]
     Route: 048
     Dates: start: 20070201
  3. AMOBAN [Concomitant]
     Route: 048
     Dates: start: 20070201
  4. LANSOPRAZOLE [Concomitant]
     Route: 048
     Dates: start: 20070201
  5. PREDONINE [Concomitant]
     Route: 048
     Dates: start: 20070201
  6. NORVASC [Concomitant]
     Route: 048
     Dates: start: 20070201
  7. LOXONIN [Concomitant]
     Route: 048
     Dates: start: 20070501
  8. TEGRETOL [Concomitant]
     Route: 048
     Dates: start: 20070601, end: 20070811
  9. FERRUM [Concomitant]
     Route: 048
     Dates: end: 20070811
  10. FLIVAS [Concomitant]
     Route: 048
  11. INDERAL [Concomitant]
     Route: 048

REACTIONS (2)
  - INTERSTITIAL LUNG DISEASE [None]
  - PULMONARY ALVEOLAR HAEMORRHAGE [None]
